FAERS Safety Report 6675690-3 (Version None)
Quarter: 2010Q2

REPORT INFORMATION
  Report Type: 
  Country: None (occurrence: None)
  Receive Date: 20100409
  Receipt Date: 20100330
  Transmission Date: 20101027
  Serious: Yes (Hospitalization)
  Sender: FDA-Public Use
  Company Number: CZ-ELI_LILLY_AND_COMPANY-CZ201004001155

PATIENT
  Age: 18 Year
  Sex: Male
  Weight: 130 kg

DRUGS (6)
  1. STRATTERA [Suspect]
     Indication: ATTENTION DEFICIT/HYPERACTIVITY DISORDER
     Dosage: 240 MG, DAILY (1/D)
     Route: 048
  2. CHLORPROTHIXEN [Concomitant]
     Indication: ATTENTION DEFICIT/HYPERACTIVITY DISORDER
     Dosage: 50 MG, EACH EVENING
     Route: 048
  3. RISPERDAL [Concomitant]
     Indication: ATTENTION DEFICIT/HYPERACTIVITY DISORDER
     Dosage: 1.25 ML, DAILY (1/D)
     Route: 048
  4. CLONAZEPAM [Concomitant]
     Indication: ATTENTION DEFICIT/HYPERACTIVITY DISORDER
     Dosage: 20 GTT, EACH MORNING
     Route: 048
  5. TIAPRIDAL [Concomitant]
     Indication: ATTENTION DEFICIT/HYPERACTIVITY DISORDER
     Dosage: 20 GTT, EACH MORNING
     Route: 048
  6. ZOLPIDEM [Concomitant]
     Indication: INSOMNIA
     Dosage: UNK, UNKNOWN
     Route: 065

REACTIONS (2)
  - OVERDOSE [None]
  - THERAPY REGIMEN CHANGED [None]
